FAERS Safety Report 6382292-5 (Version None)
Quarter: 2009Q3

REPORT INFORMATION
  Report Type: 
  Country: None (occurrence: None)
  Receive Date: 20090930
  Receipt Date: 20090902
  Transmission Date: 20100115
  Serious: Yes (Other)
  Sender: FDA-Public Use
  Company Number: US-BAYER-200913685BCC

PATIENT
  Age: 59 Year
  Sex: Male
  Weight: 105 kg

DRUGS (3)
  1. ASPIRIN [Suspect]
     Indication: DRUG USE FOR UNKNOWN INDICATION
     Route: 048
  2. PLAVIX [Suspect]
     Indication: CORONARY ARTERIAL STENT INSERTION
     Dosage: TOTAL DAILY DOSE: 75 MG  UNIT DOSE: 75 MG
     Route: 048
     Dates: start: 20090828
  3. ATENOLOL [Concomitant]
     Route: 048

REACTIONS (4)
  - BACK PAIN [None]
  - BLOOD URINE PRESENT [None]
  - HAEMATOCHEZIA [None]
  - MYALGIA [None]
